FAERS Safety Report 20002522 (Version 2)
Quarter: 2021Q4

REPORT INFORMATION
  Report Type: Spontaneous
  Country: GB (occurrence: GB)
  Receive Date: 20211027
  Receipt Date: 20211101
  Transmission Date: 20220303
  Serious: Yes (Hospitalization, Other)
  Sender: FDA-Public Use
  Company Number: GB-TAKEDA-2021TUS066613

PATIENT
  Age: 17 Year
  Sex: Male

DRUGS (1)
  1. ENTYVIO [Suspect]
     Active Substance: VEDOLIZUMAB
     Indication: Colitis ulcerative
     Dosage: UNK UNK, Q4WEEKS
     Route: 065

REACTIONS (3)
  - Colitis ulcerative [Unknown]
  - Therapeutic reaction time decreased [Unknown]
  - Off label use [Unknown]
